FAERS Safety Report 21693418 (Version 9)
Quarter: 2023Q2

REPORT INFORMATION
  Report Type: Report from Study
  Country: US (occurrence: US)
  Receive Date: 20221207
  Receipt Date: 20230616
  Transmission Date: 20230721
  Serious: No
  Sender: FDA-Public Use
  Company Number: US-002147023-NVSC2022US283527

PATIENT
  Sex: Male

DRUGS (1)
  1. COSENTYX [Suspect]
     Active Substance: SECUKINUMAB
     Indication: Psoriasis
     Dosage: 300 MG, QMO (EVERY 4 WEEKS)
     Route: 058

REACTIONS (7)
  - Inflammation [Unknown]
  - Erythema [Unknown]
  - Pruritus [Unknown]
  - Skin discolouration [Unknown]
  - Arthralgia [Unknown]
  - Injection site haemorrhage [Recovered/Resolved]
  - Skin plaque [Unknown]
